FAERS Safety Report 17225008 (Version 1)
Quarter: 2020Q1

REPORT INFORMATION
  Report Type: Report from Study
  Country: JP (occurrence: JP)
  Receive Date: 20200102
  Receipt Date: 20200102
  Transmission Date: 20200409
  Serious: Yes (Other)
  Sender: FDA-Public Use
  Company Number: JP-ACTELION-A-CH2019-199919

PATIENT
  Age: 51 Year
  Sex: Female
  Weight: 54.5 kg

DRUGS (16)
  1. FUROSEMIDE. [Concomitant]
     Active Substance: FUROSEMIDE
  2. THYRADIN S [Concomitant]
     Active Substance: LEVOTHYROXINE SODIUM
  3. SOPHIA A [Concomitant]
  4. OXYGEN. [Concomitant]
     Active Substance: OXYGEN
  5. ADCIRCA [Suspect]
     Active Substance: TADALAFIL
     Indication: PULMONARY ARTERIAL HYPERTENSION
     Dosage: 10 MG, QD
     Route: 048
     Dates: start: 20160229, end: 20160229
  6. OPSUMIT [Suspect]
     Active Substance: MACITENTAN
     Dosage: 5 MG, QD
     Route: 048
     Dates: start: 20160308, end: 20160323
  7. SELARA [Suspect]
     Active Substance: EPLERENONE
     Indication: RIGHT VENTRICULAR FAILURE
     Dosage: 25 MG, QD
     Route: 048
     Dates: start: 201703, end: 20180530
  8. LUPRAC [Concomitant]
     Active Substance: TORSEMIDE
  9. OPSUMIT [Suspect]
     Active Substance: MACITENTAN
     Indication: PULMONARY ARTERIAL HYPERTENSION
     Dosage: 10 MG, QD
     Route: 048
     Dates: start: 20160226, end: 20160307
  10. HERBESSER [Suspect]
     Active Substance: DILTIAZEM HYDROCHLORIDE
     Indication: HYPERTENSION
     Dosage: 30 MG, TID
     Route: 048
     Dates: end: 20170329
  11. DINAGEST [Concomitant]
     Active Substance: DIENOGEST
  12. FLUITRAN [Concomitant]
     Active Substance: TRICHLORMETHIAZIDE
  13. OPSUMIT [Suspect]
     Active Substance: MACITENTAN
     Dosage: 10 MG, QD
     Route: 048
     Dates: start: 20160324, end: 20180926
  14. ADCIRCA [Suspect]
     Active Substance: TADALAFIL
     Dosage: 20 MG, BID
     Route: 048
     Dates: start: 201605, end: 20180926
  15. ADCIRCA [Suspect]
     Active Substance: TADALAFIL
     Dosage: 20-30 MG QD
     Route: 048
     Dates: start: 20160301, end: 201605
  16. SLOW-K [Concomitant]
     Active Substance: POTASSIUM CHLORIDE

REACTIONS (6)
  - Fluid retention [Not Recovered/Not Resolved]
  - Anaemia [Recovering/Resolving]
  - Weight increased [Not Recovered/Not Resolved]
  - Drug-induced liver injury [Recovering/Resolving]
  - Oedema peripheral [Not Recovered/Not Resolved]
  - Headache [Recovering/Resolving]

NARRATIVE: CASE EVENT DATE: 20160301
